FAERS Safety Report 21197358 (Version 3)
Quarter: 2022Q4

REPORT INFORMATION
  Report Type: Spontaneous
  Country: PH (occurrence: PH)
  Receive Date: 20220810
  Receipt Date: 20221018
  Transmission Date: 20230113
  Serious: Yes (Other)
  Sender: FDA-Public Use
  Company Number: PH-009507513-2208PHL003448

PATIENT
  Age: 10 Year
  Sex: Female

DRUGS (3)
  1. BRIDION [Suspect]
     Active Substance: SUGAMMADEX
     Indication: Neuromuscular blockade reversal
     Dosage: INITIALLY 4 MG/KG||ONCE
  2. BRIDION [Suspect]
     Active Substance: SUGAMMADEX
     Dosage: 2.5 MG/KG, ONCE
  3. ROCURONIUM BROMIDE [Suspect]
     Active Substance: ROCURONIUM BROMIDE
     Indication: Induction of anaesthesia
     Dosage: 1 MG/KG NO MORE TAP UP, ONCE

REACTIONS (2)
  - Apnoea [Recovered/Resolved]
  - Drug ineffective [Recovered/Resolved]
